FAERS Safety Report 18539658 (Version 3)
Quarter: 2020Q4

REPORT INFORMATION
  Report Type: Spontaneous
  Country: JP (occurrence: JP)
  Receive Date: 20201124
  Receipt Date: 20201215
  Transmission Date: 20210114
  Serious: Yes (Death, Disabling, Other)
  Sender: FDA-Public Use
  Company Number: JP-JNJFOC-20201139119

PATIENT
  Age: 40 Year
  Sex: Male

DRUGS (4)
  1. XEPLION [Suspect]
     Active Substance: PALIPERIDONE PALMITATE
  2. XEPLION [Suspect]
     Active Substance: PALIPERIDONE PALMITATE
  3. XEPLION [Suspect]
     Active Substance: PALIPERIDONE PALMITATE
     Indication: PRODUCT USED FOR UNKNOWN INDICATION
     Route: 030
     Dates: start: 20190906
  4. LENDORMIN [Concomitant]
     Active Substance: BROTIZOLAM
     Route: 048

REACTIONS (4)
  - Completed suicide [Fatal]
  - Suicide attempt [Unknown]
  - Internal injury [Unknown]
  - Physical disability [Unknown]

NARRATIVE: CASE EVENT DATE: 201910
